FAERS Safety Report 8492177-6 (Version None)
Quarter: 2012Q2

REPORT INFORMATION
  Report Type: 
  Country: None (occurrence: None)
  Receive Date: 20120618
  Receipt Date: 20120606
  Transmission Date: 20120825
  Serious: Yes (Life-Threatening)
  Sender: FDA-Public Use
  Company Number: 0222776

PATIENT
  Age: 59 Year
  Sex: Male

DRUGS (6)
  1. STILNOX (ZOLPIDEM) (TABLETS) [Concomitant]
  2. AUGMENTINE (AUGMENTINE) [Concomitant]
  3. ACETAMINOPHEN [Concomitant]
  4. HALDOL [Concomitant]
  5. TACHOSIL [Suspect]
     Indication: LYMPHOSTASIS
     Dosage: 1 SPONGE 9.5 CM X 4.8 CM, TOPICAL
     Route: 061
     Dates: start: 20111027
  6. AMLODIPINE BESYLATE [Concomitant]

REACTIONS (3)
  - JUGULAR VEIN THROMBOSIS [None]
  - APPARENT LIFE THREATENING EVENT [None]
  - PULMONARY EMBOLISM [None]
